FAERS Safety Report 18579383 (Version 2)
Quarter: 2020Q4

REPORT INFORMATION
  Report Type: Spontaneous
  Country: US (occurrence: US)
  Receive Date: 20201204
  Receipt Date: 20201217
  Transmission Date: 20210114
  Serious: Yes (Hospitalization, Other)
  Sender: FDA-Public Use
  Company Number: US-UNITED THERAPEUTICS-UNT-2020-018488

PATIENT
  Age: 32 Year
  Sex: Male

DRUGS (2)
  1. REMODULIN [Suspect]
     Active Substance: TREPROSTINIL
     Indication: PULMONARY ARTERIAL HYPERTENSION
     Dosage: UNK, CONTINUING
     Route: 041
     Dates: start: 20161126
  2. REMODULIN [Suspect]
     Active Substance: TREPROSTINIL
     Dosage: 0.1064 ?G/KG, CONTINUING
     Route: 041

REACTIONS (4)
  - Pyrexia [Unknown]
  - Device breakage [Unknown]
  - COVID-19 [Unknown]
  - Vascular device infection [Unknown]

NARRATIVE: CASE EVENT DATE: 2020
